FAERS Safety Report 22049543 (Version 1)
Quarter: 2023Q1

REPORT INFORMATION
  Report Type: Spontaneous
  Country: US (occurrence: None)
  Receive Date: 20230228
  Receipt Date: 20230228
  Transmission Date: 20230418
  Serious: Yes (Other)
  Sender: FDA-Public Use
  Company Number: None

PATIENT
  Age: 78 Year
  Sex: Female
  Weight: 74.25 kg

DRUGS (5)
  1. PRALUENT [Suspect]
     Active Substance: ALIROCUMAB
     Indication: Hypercholesterolaemia
     Dosage: OTHER FREQUENCY : Q2WK;?
     Route: 030
     Dates: start: 20210819, end: 20230215
  2. lisinopril 20 bid [Concomitant]
     Dates: start: 20180501
  3. metoprolol succinate 50mg qd [Concomitant]
     Dates: start: 20170501
  4. ASA 81mg qd [Concomitant]
     Dates: start: 20210810
  5. spirinolactone 25mg qd [Concomitant]

REACTIONS (9)
  - Myalgia [None]
  - Arthralgia [None]
  - Asthenia [None]
  - Neuropathy peripheral [None]
  - Paraesthesia [None]
  - Pain in jaw [None]
  - Headache [None]
  - Loss of personal independence in daily activities [None]
  - Insomnia [None]

NARRATIVE: CASE EVENT DATE: 20230215
